FAERS Safety Report 7441990-2 (Version None)
Quarter: 2011Q2

REPORT INFORMATION
  Report Type: 
  Country: None (occurrence: None)
  Receive Date: 20110420
  Receipt Date: 20110412
  Transmission Date: 20111010
  Serious: Yes (Disabling, Other)
  Sender: FDA-Public Use
  Company Number: CH-005166

PATIENT
  Sex: Female

DRUGS (1)
  1. MINIRIN [Suspect]
     Indication: HAEMORRHAGE PROPHYLAXIS
     Dates: start: 20040101, end: 20040101

REACTIONS (2)
  - CEREBROVASCULAR ACCIDENT [None]
  - PROCEDURAL COMPLICATION [None]
